FAERS Safety Report 7321557-7 (Version None)
Quarter: 2011Q1

REPORT INFORMATION
  Report Type: 
  Country: None (occurrence: None)
  Receive Date: 20110228
  Receipt Date: 20100420
  Transmission Date: 20110831
  Serious: No
  Sender: FDA-Public Use
  Company Number: A0855882A

PATIENT
  Age: 40 Year
  Sex: Female

DRUGS (3)
  1. VALTREX [Suspect]
     Indication: IMMUNOSUPPRESSANT DRUG THERAPY
     Dosage: 1G PER DAY
     Route: 048
     Dates: start: 20100419
  2. ACETAMINOPHEN [Concomitant]
  3. DEXTROMETHORPHAN [Concomitant]

REACTIONS (3)
  - VOMITING [None]
  - DYSGEUSIA [None]
  - DRUG EXPOSURE DURING PREGNANCY [None]
